FAERS Safety Report 18142999 (Version 2)
Quarter: 2020Q3

REPORT INFORMATION
  Report Type: Other
  Country: CA (occurrence: CA)
  Receive Date: 20200812
  Receipt Date: 20200827
  Transmission Date: 20201103
  Serious: Yes (Death, Other)
  Sender: FDA-Public Use
  Company Number: CA-NOVAPHARM-000001

PATIENT
  Age: 6 Day
  Sex: Male
  Weight: 1 kg

DRUGS (1)
  1. SPY AGENT GREEN [Suspect]
     Active Substance: INDOCYANINE GREEN
     Indication: GASTRORRHAPHY
     Route: 040

REACTIONS (1)
  - Death [Fatal]

NARRATIVE: CASE EVENT DATE: 20200730
